FAERS Safety Report 6027174-3 (Version None)
Quarter: 2009Q1

REPORT INFORMATION
  Report Type: 
  Country: None (occurrence: None)
  Receive Date: 20090105
  Receipt Date: 20081222
  Transmission Date: 20090719
  Serious: Yes (Other)
  Sender: FDA-Public Use
  Company Number: JP-PFIZER INC-2008157040

PATIENT

DRUGS (6)
  1. AZITHROMYCIN [Suspect]
     Dosage: UNK
     Route: 048
  2. TRANSAMIN [Concomitant]
     Route: 048
  3. NEUZYM [Concomitant]
     Route: 048
  4. ZADITEN [Concomitant]
     Route: 048
  5. ONON [Concomitant]
     Route: 048
  6. CELESTAMINE TAB [Concomitant]
     Route: 048

REACTIONS (1)
  - ERYTHEMA MULTIFORME [None]
